FAERS Safety Report 10867454 (Version 1)
Quarter: 2015Q1

REPORT INFORMATION
  Report Type: Spontaneous
  Country: IT (occurrence: IT)
  Receive Date: 20150225
  Receipt Date: 20150225
  Transmission Date: 20150721
  Serious: Yes (Hospitalization, Other)
  Sender: FDA-Public Use
  Company Number: IT-BAYER-2015-023972

PATIENT
  Age: 53 Year
  Sex: Male

DRUGS (3)
  1. CIPROFLOXACIN. [Suspect]
     Active Substance: CIPROFLOXACIN
     Indication: BIOPSY PROSTATE
     Dosage: 1000 MG, UNK
     Dates: start: 2014
  2. CIPROFLOXACIN. [Suspect]
     Active Substance: CIPROFLOXACIN
     Indication: INFECTION
     Dosage: EMPIRIC THERAPY
  3. IMIPENEM AND CILASTATIN [Suspect]
     Active Substance: CILASTATIN SODIUM\IMIPENEM
     Indication: INFECTION
     Dosage: PROLONGED TREATMENT

REACTIONS (3)
  - Escherichia infection [None]
  - Sepsis [Recovered/Resolved]
  - Multiple-drug resistance [None]

NARRATIVE: CASE EVENT DATE: 2014
